FAERS Safety Report 9803032 (Version 1)
Quarter: 2014Q1

REPORT INFORMATION
  Report Type: Spontaneous
  Country: GB (occurrence: GB)
  Receive Date: 20140108
  Receipt Date: 20140108
  Transmission Date: 20141002
  Serious: Yes (Disabling)
  Sender: FDA-Public Use
  Company Number: GB-JNJFOC-20140100994

PATIENT
  Age: 39 Year
  Sex: Female

DRUGS (1)
  1. PALIPERIDONE PALMITATE [Suspect]
     Indication: SCHIZOPHRENIA
     Route: 030
     Dates: start: 20130311, end: 20131220

REACTIONS (3)
  - Restless legs syndrome [Not Recovered/Not Resolved]
  - Skin mass [Not Recovered/Not Resolved]
  - Somnambulism [Not Recovered/Not Resolved]
